FAERS Safety Report 12950985 (Version 1)
Quarter: 2016Q4

REPORT INFORMATION
  Report Type: Spontaneous
  Country: US (occurrence: US)
  Receive Date: 20161117
  Receipt Date: 20161117
  Transmission Date: 20170207
  Serious: No
  Sender: FDA-Public Use
  Company Number: US-NOVOPROD-509455

PATIENT
  Sex: Female

DRUGS (3)
  1. NOVOLOG [Suspect]
     Active Substance: INSULIN ASPART
     Dosage: 8 UNITS DAILY BEFORE DINNER
     Route: 058
     Dates: start: 201603
  2. NOVOLOG [Suspect]
     Active Substance: INSULIN ASPART
     Dosage: 4 UNITS AT DAILY AT LUNCH TIME
     Route: 058
     Dates: start: 201603
  3. NOVOLOG [Suspect]
     Active Substance: INSULIN ASPART
     Indication: TYPE 2 DIABETES MELLITUS
     Dosage: 8 UNITS IN DAILY IN THE AM
     Route: 058
     Dates: start: 201603

REACTIONS (3)
  - Blood glucose increased [Not Recovered/Not Resolved]
  - Blood pressure increased [Unknown]
  - Disturbance in attention [Not Recovered/Not Resolved]

NARRATIVE: CASE EVENT DATE: 20160813
